FAERS Safety Report 4492256-4 (Version None)
Quarter: 2004Q4

REPORT INFORMATION
  Report Type: 
  Country: None (occurrence: None)
  Receive Date: 20041101
  Receipt Date: 20041019
  Transmission Date: 20050328
  Serious: Yes (Death, Hospitalization)
  Sender: FDA-Public Use
  Company Number: A-CH2004-06190

PATIENT
  Age: 73 Year
  Sex: Female
  Weight: 50 kg

DRUGS (8)
  1. TRACLEER [Suspect]
     Indication: PULMONARY HYPERTENSION
     Dosage: 62.5 MG, BID, ORAL
     Route: 048
     Dates: start: 20040406, end: 20040407
  2. LASIX [Concomitant]
  3. CORDARONE [Concomitant]
  4. PREVISCAN (FLUINDIONE) [Concomitant]
  5. CITALOPRAM HYDROBROMIDE [Concomitant]
  6. OMEPRAZOLE [Concomitant]
  7. XANAX [Concomitant]
  8. COVERSYL (PERINDOPRIL) [Concomitant]

REACTIONS (6)
  - BREAST CANCER [None]
  - CACHEXIA [None]
  - CONDITION AGGRAVATED [None]
  - DISEASE PROGRESSION [None]
  - MALIGNANT NEOPLASM PROGRESSION [None]
  - PULMONARY HYPERTENSION [None]
